FAERS Safety Report 23876669 (Version 1)
Quarter: 2024Q2

REPORT INFORMATION
  Report Type: Spontaneous
  Country: GB (occurrence: GB)
  Receive Date: 20240521
  Receipt Date: 20240521
  Transmission Date: 20240716
  Serious: Yes (Other)
  Sender: FDA-Public Use
  Company Number: None

PATIENT
  Age: 52 Year
  Sex: Female
  Weight: 73 kg

DRUGS (5)
  1. RYBELSUS [Suspect]
     Active Substance: SEMAGLUTIDE
     Indication: Insulin-requiring type 2 diabetes mellitus
     Dosage: 3 MG
     Route: 048
     Dates: start: 20240227
  2. RYBELSUS [Suspect]
     Active Substance: SEMAGLUTIDE
     Dosage: 7 MG, QD
     Route: 048
     Dates: end: 20240417
  3. DAPAGLIFLOZIN [Concomitant]
     Active Substance: DAPAGLIFLOZIN
     Dosage: 1 (AM)
     Dates: start: 20240501
  4. EMPAGLIFLOZIN [Concomitant]
     Active Substance: EMPAGLIFLOZIN
     Dosage: 1, QD
     Dates: start: 20240227, end: 20240227
  5. FIASP [Concomitant]
     Active Substance: INSULIN ASPART
     Dosage: UNK (IMMEDIATELY PRE MEAL)
     Dates: start: 20240501

REACTIONS (2)
  - Swelling face [Recovered/Resolved]
  - Eye swelling [Recovered/Resolved]

NARRATIVE: CASE EVENT DATE: 20240410
